FAERS Safety Report 10534057 (Version 2)
Quarter: 2014Q4

REPORT INFORMATION
  Report Type: Spontaneous
  Country: US (occurrence: US)
  Receive Date: 20141022
  Receipt Date: 20141022
  Transmission Date: 20150529
  Serious: Yes (Death, Other)
  Sender: FDA-Public Use
  Company Number: US-GSKJP-DK201410956002

PATIENT
  Age: 57 Year
  Sex: Female
  Weight: 60.9 kg

DRUGS (7)
  1. TRAMADOL [Concomitant]
     Active Substance: TRAMADOL
  2. TYKERB [Suspect]
     Active Substance: LAPATINIB DITOSYLATE
     Indication: BREAST CANCER
     Dosage: 1000 MG, QD
  3. HERCEPTIN [Concomitant]
     Active Substance: TRASTUZUMAB
  4. ATIVAN [Concomitant]
     Active Substance: LORAZEPAM
  5. TYKERB [Suspect]
     Active Substance: LAPATINIB DITOSYLATE
     Indication: BRAIN NEOPLASM MALIGNANT
     Dosage: TOTAL DOSE 750 MG DAILY 250 MG TABLET, FOR A TOTAL DOSE OF 1000 MG DAILY
     Route: 048
  6. METHOCARBAMOL. [Concomitant]
     Active Substance: METHOCARBAMOL
  7. LEVETIRACETAM. [Concomitant]
     Active Substance: LEVETIRACETAM

REACTIONS (6)
  - Breast cancer metastatic [Fatal]
  - Metastases to central nervous system [Fatal]
  - Onychoclasis [Unknown]
  - Rhinorrhoea [Unknown]
  - Confusional state [Unknown]
  - Onychomadesis [Unknown]

NARRATIVE: CASE EVENT DATE: 20101208
